FAERS Safety Report 7114603-7 (Version None)
Quarter: 2010Q4

REPORT INFORMATION
  Report Type: 
  Country: None (occurrence: None)
  Receive Date: 20101121
  Receipt Date: 20101108
  Transmission Date: 20110411
  Serious: Yes (Life-Threatening, Hospitalization)
  Sender: FDA-Public Use
  Company Number: US-MYLANLABS-2010S1020834

PATIENT
  Age: 58 Year
  Sex: Male

DRUGS (2)
  1. AMITRIPTYLINE HCL [Suspect]
     Indication: INTENTIONAL OVERDOSE
     Dosage: INGESTED 60 PILLS (75 MG EACH)
     Route: 048
  2. AMITRIPTYLINE HCL [Suspect]
     Indication: SUICIDE ATTEMPT
     Dosage: INGESTED 60 PILLS (75 MG EACH)
     Route: 048

REACTIONS (3)
  - ELECTROCARDIOGRAM ABNORMAL [None]
  - INTENTIONAL OVERDOSE [None]
  - LOSS OF CONSCIOUSNESS [None]
